FAERS Safety Report 21348948 (Version 1)
Quarter: 2022Q3

REPORT INFORMATION
  Report Type: Spontaneous
  Country: US (occurrence: US)
  Receive Date: 20220919
  Receipt Date: 20220919
  Transmission Date: 20221027
  Serious: Yes (Hospitalization)
  Sender: FDA-Public Use
  Company Number: US-MYLANLABS-2022M1093497

PATIENT
  Age: 57 Year
  Sex: Female

DRUGS (22)
  1. LENALIDOMIDE [Suspect]
     Active Substance: LENALIDOMIDE
     Indication: Plasma cell myeloma
     Dosage: UNK, COMBINATIONS OF TREATMENT WITH LENALIDOMIDE, BORTEZOMIB AND DEXAMETHASONE
     Route: 065
  2. DEXAMETHASONE [Suspect]
     Active Substance: DEXAMETHASONE
     Indication: Plasma cell myeloma
     Dosage: UNK, COMBINATIONS OF TREATMENT WITH LENALIDOMIDE, BORTEZOMIB AND DEXAMETHASONE
     Route: 065
  3. DEXAMETHASONE [Suspect]
     Active Substance: DEXAMETHASONE
     Dosage: UNK, COMBINATIONS OF TREATMENT WITH CARFILZOMIB, POMALIDOMIDE AND DEXAMETHASONE
     Route: 065
  4. DEXAMETHASONE [Suspect]
     Active Substance: DEXAMETHASONE
     Dosage: UNK, COMBINATIONS OF TREATMENT WITH CYCLOPHOSPHAMIDE, BORTEZOMIB AND DEXAMETHASONE (CYBORD)
     Route: 065
  5. DEXAMETHASONE [Suspect]
     Active Substance: DEXAMETHASONE
     Dosage: UNK, COMBINATIONS OF TREATMENT WITH CARFILZOMIB, LENALIDOMIDE AND DEXAMETHASONE
     Route: 065
  6. DEXAMETHASONE [Suspect]
     Active Substance: DEXAMETHASONE
     Dosage: UNK, COMBINATIONS OF TREATMENT WITH MELPHALAN FLUFENAMIDE [MELFLUFEN] AND DEXAMETHASONE
     Route: 065
  7. POMALIDOMIDE [Suspect]
     Active Substance: POMALIDOMIDE
     Indication: Plasma cell myeloma
     Dosage: UNK, COMBINATIONS OF TREATMENT WITH CARFILZOMIB, POMALIDOMIDE AND DEXAMETHASONE
     Route: 065
  8. POMALIDOMIDE [Suspect]
     Active Substance: POMALIDOMIDE
     Dosage: UNK,COMBINATIONS OF TREATMENT WITH POMALIDOMIDE, IXAZOMIB AND PREDNISONE
     Route: 065
  9. POMALIDOMIDE [Suspect]
     Active Substance: POMALIDOMIDE
     Dosage: UNK, COMBINATIONS OF TREATMENT WITH ISATUXIMAB AND POMALIDOMIDE
     Route: 065
  10. PREDNISONE [Suspect]
     Active Substance: PREDNISONE
     Indication: Plasma cell myeloma
     Dosage: UNK, COMBINATIONS OF TREATMENT WITH POMALIDOMIDE, IXAZOMIB AND PREDNISONE
     Route: 065
  11. MELPHALAN [Suspect]
     Active Substance: MELPHALAN
     Indication: Plasma cell myeloma
     Dosage: UNK,HIGH-DOSE MELPHALAN WITH AUTOLOGOUS BONE MARROW TRANSPLANT
     Route: 065
  12. BORTEZOMIB [Suspect]
     Active Substance: BORTEZOMIB
     Indication: Plasma cell myeloma
     Dosage: UNK,COMBINATIONS OF TREATMENT WITH LENALIDOMIDE, BORTEZOMIB AND DEXAMETHASONE
     Route: 065
  13. BORTEZOMIB [Suspect]
     Active Substance: BORTEZOMIB
     Dosage: UNK,COMBINATIONS OF TREATMENT WITH CYCLOPHOSPHAMIDE, BORTEZOMIB AND DEXAMETHASONE (CYBORD)
     Route: 065
  14. CARFILZOMIB [Suspect]
     Active Substance: CARFILZOMIB
     Indication: Plasma cell myeloma
     Dosage: UNK,COMBINATIONS OF TREATMENT WITH CARFILZOMIB, POMALIDOMIDE AND DEXAMETHASONE
     Route: 065
  15. CARFILZOMIB [Suspect]
     Active Substance: CARFILZOMIB
     Dosage: UNK,COMBINATIONS OF TREATMENT WITH CARFILZOMIB, LENALIDOMIDE AND DEXAMETHASONE
     Route: 065
  16. MELPHALAN FLUFENAMIDE HYDROCHLORIDE [Suspect]
     Active Substance: MELPHALAN FLUFENAMIDE HYDROCHLORIDE
     Indication: Plasma cell myeloma
     Dosage: UNK,COMBINATIONS OF TREATMENT WITH MELPHALAN FLUFENAMIDE [MELFLUFEN] AND DEXAMETHASONE
     Route: 065
  17. DARZALEX [Suspect]
     Active Substance: DARATUMUMAB
     Indication: Plasma cell myeloma
     Dosage: UNK,COMBINATIONS OF TREATMENT WITH MELPHALAN FLUFENAMIDE [MELFLUFEN] AND DEXAMETHASONE
     Route: 065
  18. IXAZOMIB [Suspect]
     Active Substance: IXAZOMIB
     Indication: Plasma cell myeloma
     Dosage: UNK,COMBINATIONS OF TREATMENT WITH POMALIDOMIDE, IXAZOMIB AND PREDNISONE
     Route: 065
  19. CYCLOPHOSPHAMIDE [Suspect]
     Active Substance: CYCLOPHOSPHAMIDE
     Indication: Plasma cell myeloma
     Dosage: UNK,COMBINATIONS OF TREATMENT WITH CYCLOPHOSPHAMIDE, BORTEZOMIB AND DEXAMETHASONE (CYBORD)
     Route: 065
  20. ISATUXIMAB [Suspect]
     Active Substance: ISATUXIMAB
     Indication: Plasma cell myeloma
     Dosage: UNK,COMBINATIONS OF TREATMENT WITH ISATUXIMAB AND POMALIDOMIDE
     Route: 065
  21. FUROSEMIDE [Concomitant]
     Active Substance: FUROSEMIDE
     Indication: Polyuria
     Dosage: UNK
     Route: 065
  22. TORSEMIDE [Concomitant]
     Active Substance: TORSEMIDE
     Indication: Polyuria
     Dosage: UNK
     Route: 065

REACTIONS (1)
  - Drug ineffective [Unknown]
